FAERS Safety Report 8776318 (Version 1)
Quarter: 2012Q4

REPORT INFORMATION
  Report Type: 
  Country: CO (occurrence: CO)
  Receive Date: 20120910
  Receipt Date: 20120910
  Transmission Date: 20130627
  Serious: Yes (Life-Threatening, Other)
  Sender: FDA-Public Use
  Company Number: CO-BAXTER-2012BAX016053

PATIENT
  Age: 41 Year
  Sex: Female
  Weight: 54.1 kg

DRUGS (4)
  1. DIANEAL PD-2 CON DEXTROSA AL 1,5%. [Suspect]
     Indication: PERITONEAL DIALYSIS
     Route: 033
  2. DIANEAL PD-2 CON DEXTROSA AL 2,5%. [Suspect]
     Indication: PERITONEAL DIALYSIS
     Route: 033
  3. KEFLIN [Suspect]
     Indication: PERITONITIS
     Route: 033
     Dates: start: 20120820, end: 20120823
  4. GENTAMICIN [Suspect]
     Indication: PERITONITIS
     Route: 033
     Dates: start: 20120820, end: 20120827

REACTIONS (2)
  - Toxic skin eruption [Recovered/Resolved]
  - Peritonitis [Recovered/Resolved]
